FAERS Safety Report 7799994-6 (Version None)
Quarter: 2011Q4

REPORT INFORMATION
  Report Type: 
  Country: None (occurrence: None)
  Receive Date: 20111006
  Receipt Date: 20110928
  Transmission Date: 20120403
  Serious: Yes (Other)
  Sender: FDA-Public Use
  Company Number: US-B.I. PHARMACEUTICALS,INC./RIDGEFIELD-2011-BP-23255PF

PATIENT
  Sex: Female
  Weight: 117.91 kg

DRUGS (16)
  1. ASPIRIN [Concomitant]
  2. BETTA (EXENATIDE) [Concomitant]
  3. MOMETASONE FUROATE [Concomitant]
  4. SINGULAIR [Concomitant]
  5. LISINOPRIL [Concomitant]
  6. ACCOLATE [Concomitant]
  7. LANTUS [Concomitant]
  8. MELOXICAM [Concomitant]
  9. SOMA [Concomitant]
  10. SPIRIVA [Suspect]
     Indication: DYSPNOEA
     Dates: start: 20030101
  11. SORIATANE [Concomitant]
  12. LIPITOR [Suspect]
     Indication: BLOOD CHOLESTEROL INCREASED
     Dosage: 20 MG
     Route: 048
     Dates: start: 20010101
  13. PROTONIX [Suspect]
     Indication: GASTROOESOPHAGEAL REFLUX DISEASE
     Route: 048
     Dates: start: 20060101
  14. HUMIRA [Concomitant]
  15. INSULIN GLULISINE (INSULIN GLULISINE) [Concomitant]
  16. CELEXA [Concomitant]

REACTIONS (3)
  - NERVOUSNESS [None]
  - FEELING ABNORMAL [None]
  - TREMOR [None]
